FAERS Safety Report 7293737-0 (Version None)
Quarter: 2011Q1

REPORT INFORMATION
  Report Type: 
  Country: None (occurrence: None)
  Receive Date: 20110215
  Receipt Date: 20110201
  Transmission Date: 20110831
  Serious: Yes (Hospitalization, Other)
  Sender: FDA-Public Use
  Company Number: US-ELI_LILLY_AND_COMPANY-US201102000603

PATIENT
  Sex: Female
  Weight: 65.306 kg

DRUGS (28)
  1. DIAZEPAM [Concomitant]
  2. LUVOX [Concomitant]
  3. ZYPREXA [Suspect]
     Indication: DEPRESSION
     Dosage: 20 MG, DAILY (1/D)
     Dates: start: 19970101, end: 20000101
  4. SEROQUEL [Concomitant]
  5. RISPERDAL [Concomitant]
  6. HALDOL [Concomitant]
  7. TRILAFON [Concomitant]
  8. GEODON [Concomitant]
  9. AMBIEN [Concomitant]
  10. ZANTAC [Concomitant]
  11. INDERAL [Concomitant]
  12. AMITRIPTYLINE [Concomitant]
  13. PROPYCIL [Concomitant]
  14. CODEINE [Concomitant]
     Indication: PAIN
  15. PROPRANOLOL [Concomitant]
     Dosage: 10 MG, 2/D
  16. INSULIN [Concomitant]
  17. KLONOPIN [Concomitant]
  18. ZYPREXA [Suspect]
     Dosage: 30 MG, DAILY (1/D)
  19. PROZAC [Suspect]
     Dosage: 20 MG, UNK
     Route: 065
  20. PROZAC [Suspect]
     Dosage: 40 MG, UNK
     Route: 065
  21. DEPAKOTE [Concomitant]
  22. GLYBURIDE [Concomitant]
  23. ANAFRANIL [Concomitant]
  24. PAXIL [Concomitant]
     Dosage: UNK, UNK
  25. WELLBUTRIN [Concomitant]
     Dosage: UNK, UNK
  26. CARBAMAZEPINE [Concomitant]
  27. AVANDIA [Concomitant]
  28. MEVACOR [Concomitant]

REACTIONS (22)
  - DIABETES MELLITUS [None]
  - BLOOD TRIGLYCERIDES INCREASED [None]
  - OBESITY [None]
  - OFF LABEL USE [None]
  - DEPRESSION [None]
  - NIGHTMARE [None]
  - CONVULSION [None]
  - DRUG INEFFECTIVE [None]
  - CHOLELITHIASIS [None]
  - FATIGUE [None]
  - WEIGHT INCREASED [None]
  - HYPOAESTHESIA [None]
  - MUMPS [None]
  - WEIGHT DECREASED [None]
  - BLOOD CREATINE PHOSPHOKINASE INCREASED [None]
  - LIPIDS INCREASED [None]
  - OVERDOSE [None]
  - BLOOD CHOLESTEROL INCREASED [None]
  - TARDIVE DYSKINESIA [None]
  - RESTLESSNESS [None]
  - PORPHYRIA [None]
  - POLYCYSTIC OVARIES [None]
